FAERS Safety Report 25790761 (Version 1)
Quarter: 2025Q3

REPORT INFORMATION
  Report Type: Spontaneous
  Country: US (occurrence: US)
  Receive Date: 20250911
  Receipt Date: 20250911
  Transmission Date: 20251020
  Serious: No
  Sender: PFIZER
  Company Number: US-PFIZER INC-PV202500109832

PATIENT
  Age: 61 Year
  Sex: Female

DRUGS (7)
  1. EUCRISA [Suspect]
     Active Substance: CRISABOROLE
     Indication: Idiopathic urticaria
  2. OPZELURA [Concomitant]
     Active Substance: RUXOLITINIB PHOSPHATE
  3. ELIDEL [Concomitant]
     Active Substance: PIMECROLIMUS
  4. TACROLIMUS [Concomitant]
     Active Substance: TACROLIMUS
  5. HYDROCORTISONE [Concomitant]
     Active Substance: HYDROCORTISONE
  6. CLOBETASOL [Concomitant]
     Active Substance: CLOBETASOL
  7. XOLAIR [Concomitant]
     Active Substance: OMALIZUMAB
     Indication: Idiopathic urticaria

REACTIONS (2)
  - Drug ineffective for unapproved indication [Unknown]
  - Off label use [Unknown]
